FAERS Safety Report 8534334-6 (Version None)
Quarter: 2012Q3

REPORT INFORMATION
  Report Type: 
  Country: None (occurrence: None)
  Receive Date: 20120712
  Receipt Date: 20120627
  Transmission Date: 20120928
  Serious: Yes (Hospitalization)
  Sender: FDA-Public Use
  Company Number: ALK_02701_2012

PATIENT
  Sex: Male
  Weight: 53.978 kg

DRUGS (3)
  1. LEXAPRO [Concomitant]
  2. VIVITROL [Suspect]
     Indication: ALCOHOLISM
     Dosage: (380 MG 1X/MONTH INTRAMUSCULAR)
     Route: 030
     Dates: start: 20120501
  3. MEGACE [Concomitant]

REACTIONS (9)
  - BLOOD POTASSIUM DECREASED [None]
  - HYPOPHAGIA [None]
  - WEIGHT DECREASED [None]
  - CONFUSIONAL STATE [None]
  - POOR PERSONAL HYGIENE [None]
  - CONDITION AGGRAVATED [None]
  - SOCIAL AVOIDANT BEHAVIOUR [None]
  - DEPRESSION [None]
  - HALLUCINATION, VISUAL [None]
